FAERS Safety Report 8076043-6 (Version None)
Quarter: 2012Q1

REPORT INFORMATION
  Report Type: 
  Country: None (occurrence: None)
  Receive Date: 20120127
  Receipt Date: 20110526
  Transmission Date: 20120608
  Serious: No
  Sender: FDA-Public Use
  Company Number: US-GLAXOSMITHKLINE-A0930446A

PATIENT
  Age: 28 Year
  Sex: Female
  Weight: 63 kg

DRUGS (3)
  1. CORTICORTEN [Concomitant]
     Indication: PRODUCT USED FOR UNKNOWN INDICATION
     Dosage: 1TAB IN THE MORNING
     Route: 065
     Dates: start: 20110525
  2. WELLBUTRIN XL [Suspect]
     Indication: DYSLEXIA
     Dosage: 150MG IN THE MORNING
     Route: 065
     Dates: start: 20110518
  3. YAZ [Concomitant]
     Indication: PRODUCT USED FOR UNKNOWN INDICATION
     Dosage: 1TAB PER DAY
     Route: 065
     Dates: start: 20100501

REACTIONS (4)
  - DYSPNOEA [None]
  - TACHYCARDIA [None]
  - DRUG INEFFECTIVE [None]
  - OFF LABEL USE [None]
